FAERS Safety Report 10921132 (Version 1)
Quarter: 2015Q1

REPORT INFORMATION
  Report Type: Spontaneous
  Country: SE (occurrence: None)
  Receive Date: 20150312
  Receipt Date: 20150312
  Transmission Date: 20150721
  Serious: Yes (Life-Threatening, Hospitalization, Other)
  Sender: FDA-Public Use
  Company Number: 2015-10786

PATIENT
  Age: 74 Year
  Sex: Female

DRUGS (1)
  1. EYLEA [Suspect]
     Active Substance: AFLIBERCEPT
     Indication: MACULAR DEGENERATION
     Dosage: 7 INJECTIONS IN RIGHT EYE AND 5 INJECTIONS IN LEFT EYE
     Route: 031
     Dates: start: 2013

REACTIONS (1)
  - Angina unstable [None]

NARRATIVE: CASE EVENT DATE: 201412
